FAERS Safety Report 11590224 (Version 2)
Quarter: 2015Q4

REPORT INFORMATION
  Report Type: Spontaneous
  Country: FR (occurrence: FR)
  Receive Date: 20151002
  Receipt Date: 20151007
  Transmission Date: 20160304
  Serious: Yes (Death)
  Sender: FDA-Public Use
  Company Number: PHHY2015FR117336

PATIENT
  Age: 1 Month
  Sex: Female

DRUGS (23)
  1. VOGALENE [Suspect]
     Active Substance: METOPIMAZINE
     Indication: FOETAL EXPOSURE DURING PREGNANCY
     Dosage: (MATERNAL DOSE: UNKNOWN)
     Route: 064
     Dates: start: 201406
  2. NECYRANE [Suspect]
     Active Substance: RITIOMETAN
     Indication: FOETAL EXPOSURE DURING PREGNANCY
     Dosage: MATERNAL DOSE: UNKNOWN)
     Route: 064
     Dates: start: 20140825
  3. SERETIDE [Suspect]
     Active Substance: FLUTICASONE FUROATE\SALMETEROL XINAFOATE
     Indication: FOETAL EXPOSURE DURING PREGNANCY
     Dosage: MATERNAL DOSE: UNKNOWN)
     Route: 064
     Dates: start: 20140825
  4. PARACETAMOL ARROW [Concomitant]
     Active Substance: ACETAMINOPHEN
     Indication: PRODUCT USED FOR UNKNOWN INDICATION
     Dosage: UNK
     Route: 065
     Dates: start: 201402
  5. FUNGIZONE [Concomitant]
     Active Substance: AMPHOTERICIN B
     Indication: FUNGAL INFECTION
     Dosage: 0.5 ML, FOR 15 DAYS
     Route: 065
     Dates: start: 20150126
  6. PIVALONE [Suspect]
     Active Substance: TIXOCORTOL PIVALATE
     Indication: FOETAL EXPOSURE DURING PREGNANCY
     Dosage: MATERNAL DOSE: UNKNOWN)
     Route: 064
     Dates: start: 20141212
  7. BI-PROFENID [Suspect]
     Active Substance: KETOPROFEN
     Indication: FOETAL EXPOSURE DURING PREGNANCY
     Dosage: (MATERNAL DOSE: UNKNOWN)
     Route: 064
  8. VOGALENE [Suspect]
     Active Substance: METOPIMAZINE
     Dosage: (MATERNAL DOSE: UNKNOWN)
     Route: 064
     Dates: start: 20140920
  9. MACROGOL BIOGARAN [Suspect]
     Active Substance: POLYETHYLENE GLYCOLS
     Indication: FOETAL EXPOSURE DURING PREGNANCY
     Dosage: MATERNAL DOSE: UNKNOWN)
     Route: 064
     Dates: start: 201406
  10. ACETYLCYSTEINE BIOGARAN [Suspect]
     Active Substance: ACETYLCYSTEINE
     Indication: FOETAL EXPOSURE DURING PREGNANCY
     Dosage: MATERNAL DOSE: UNKNOWN)
     Route: 064
     Dates: start: 20140825
  11. AMOXYCILLIN ALMUS [Suspect]
     Active Substance: AMOXICILLIN
     Dosage: MATERNAL DOSE: UNKNOWN)
     Route: 064
     Dates: start: 201412
  12. MACROGOL BIOGARAN [Suspect]
     Active Substance: POLYETHYLENE GLYCOLS
     Dosage: MATERNAL DOSE: UNKNOWN)
     Route: 064
     Dates: start: 20140716
  13. IMODIUM [Suspect]
     Active Substance: LOPERAMIDE HYDROCHLORIDE
     Indication: FOETAL EXPOSURE DURING PREGNANCY
     Dosage: MATERNAL DOSE: UNKNOWN) FOR 5 DAYS
     Route: 064
     Dates: start: 20141212
  14. ANAFRANIL [Suspect]
     Active Substance: CLOMIPRAMINE HYDROCHLORIDE
     Indication: FOETAL EXPOSURE DURING PREGNANCY
     Dosage: 2 DF, QD
     Route: 064
  15. KLIPAL CODEINE [Suspect]
     Active Substance: ACETAMINOPHEN\CODEINE PHOSPHATE
     Indication: FOETAL EXPOSURE DURING PREGNANCY
     Dosage: (MATERNAL DOSE: UNKNOWN)
     Route: 064
     Dates: start: 20140203, end: 20150104
  16. BROMAZEPAM ARROW [Suspect]
     Active Substance: BROMAZEPAM
     Indication: FOETAL EXPOSURE DURING PREGNANCY
     Dosage: ONE AND A HALF DOSAGE PER DAY
     Route: 064
  17. CARBOCISTEINE BIOGARAN [Suspect]
     Active Substance: CARBOCYSTEINE
     Indication: FOETAL EXPOSURE DURING PREGNANCY
     Dosage: MATERNAL DOSE: UNKNOWN) 5 POUR CENT
     Route: 064
     Dates: start: 20141212, end: 20141216
  18. KETOPROFENE MYLAN [Suspect]
     Active Substance: KETOPROFEN
     Indication: FOETAL EXPOSURE DURING PREGNANCY
     Dosage: (MATERNAL DOSE: UNKNOWN)
     Route: 064
  19. OMEPRAZOLE. [Suspect]
     Active Substance: OMEPRAZOLE
     Indication: FOETAL EXPOSURE DURING PREGNANCY
     Dosage: (MATERNAL DOSE: UNKNOWN)
     Route: 064
     Dates: start: 20140920
  20. AMOXYCILLIN ALMUS [Suspect]
     Active Substance: AMOXICILLIN
     Indication: FOETAL EXPOSURE DURING PREGNANCY
     Dosage: MATERNAL DOSE: UNKNOWN)
     Route: 064
     Dates: start: 20140827
  21. KETOPROFENE ARROW [Suspect]
     Active Substance: KETOPROFEN
     Indication: FOETAL EXPOSURE DURING PREGNANCY
     Dosage: (MATERNAL DOSE: UNKNOWN)
     Route: 064
  22. SPASFON LYOC [Suspect]
     Active Substance: PHLOROGLUCINOL
     Indication: FOETAL EXPOSURE DURING PREGNANCY
     Dosage: (MATERNAL DOSE: UNKNOWN)
     Route: 064
     Dates: start: 201406, end: 201407
  23. UVESTEROL D [Suspect]
     Active Substance: ERGOCALCIFEROL
     Indication: FOETAL EXPOSURE DURING PREGNANCY
     Dosage: 1500 U/L, UNK
     Route: 064

REACTIONS (7)
  - Foetal arrhythmia [None]
  - Aspiration [None]
  - Lung disorder [None]
  - Oral fungal infection [None]
  - Death [Fatal]
  - Maternal drugs affecting foetus [None]
  - Poor weight gain neonatal [None]

NARRATIVE: CASE EVENT DATE: 20150303
